FAERS Safety Report 6380681-6 (Version None)
Quarter: 2009Q3

REPORT INFORMATION
  Report Type: 
  Country: None (occurrence: None)
  Receive Date: 20090929
  Receipt Date: 20090919
  Transmission Date: 20100115
  Serious: Yes (Hospitalization, Other)
  Sender: FDA-Public Use
  Company Number: FR-ABBOTT-09P-056-0598445-00

PATIENT
  Age: 39 Year
  Sex: Male
  Weight: 75 kg

DRUGS (11)
  1. KALETRA [Suspect]
     Indication: HIV INFECTION
     Dosage: 100/400MG/12 H
  2. VINCRISTINE [Suspect]
     Indication: BURKITT'S LYMPHOMA
  3. ABACAVIR SULFATE/LAMIVUDINE [Concomitant]
     Indication: HIV INFECTION
     Dosage: 600MG/300MG/24 H
  4. SULFAMETHOXAZOLE AND TRIMETHOPRIM [Concomitant]
     Indication: DRUG USE FOR UNKNOWN INDICATION
     Dosage: 400MG/80MG 2X WEEK
  5. VALACYCLOVIR HCL [Concomitant]
     Indication: DRUG USE FOR UNKNOWN INDICATION
  6. CYCLOPHOSPHAMIDE [Concomitant]
     Indication: BURKITT'S LYMPHOMA
     Dosage: 800MG/M**2/DAY 1
  7. CYCLOPHOSPHAMIDE [Concomitant]
     Dosage: 200 MG/M**2 DAY 2-5
  8. DOXORUBICIN HCL [Concomitant]
     Indication: BURKITT'S LYMPHOMA
     Dosage: 40 MG/M**2 DAY 1
  9. METHOTREXATE [Concomitant]
     Indication: BURKITT'S LYMPHOMA
     Dosage: 6.72 G/M**2 DAY 10
     Route: 042
  10. METHOTREXATE [Concomitant]
     Dosage: 15MG DAY 15
     Route: 037
  11. CYTARABINE [Concomitant]
     Indication: BURKITT'S LYMPHOMA
     Dosage: 70 MG DAYS 1 AND 3
     Route: 037

REACTIONS (2)
  - DRUG INTERACTION [None]
  - ILEUS PARALYTIC [None]
